FAERS Safety Report 8122926-8 (Version None)
Quarter: 2012Q1

REPORT INFORMATION
  Report Type: 
  Country: None (occurrence: None)
  Receive Date: 20120208
  Receipt Date: 20120130
  Transmission Date: 20120608
  Serious: Yes (Other)
  Sender: FDA-Public Use
  Company Number: BR-PFIZER INC-2011079927

PATIENT
  Age: 32 Year
  Sex: Male
  Weight: 85 kg

DRUGS (4)
  1. CENTRUM [Concomitant]
     Indication: VITAMIN SUPPLEMENTATION
     Dosage: UNK
     Dates: start: 20090101
  2. VIAGRA [Suspect]
     Dosage: UNK
     Route: 048
     Dates: start: 20120129
  3. VIAGRA [Suspect]
     Dosage: UNK
     Route: 048
     Dates: start: 20110323
  4. VIAGRA [Suspect]
     Dosage: 25 MG (1 TABLET), SINGLE
     Route: 048
     Dates: start: 20110410, end: 20110410

REACTIONS (2)
  - ERECTION INCREASED [None]
  - PENIS DISORDER [None]
